FAERS Safety Report 16244045 (Version 1)
Quarter: 2019Q2

REPORT INFORMATION
  Report Type: Spontaneous
  Country: US (occurrence: US)
  Receive Date: 20190322
  Receipt Date: 20190322
  Transmission Date: 20190711
  Serious: Yes (Death)
  Sender: FDA-Public Use
  Company Number: None

PATIENT
  Age: 73 Year
  Sex: Female

DRUGS (1)
  1. REGORAFENIB. [Suspect]
     Active Substance: REGORAFENIB
     Indication: COLON CANCER STAGE IV
     Dosage: ?          OTHER FREQUENCY:DAILY X21;?
     Route: 048
     Dates: start: 20170110, end: 20170121

REACTIONS (2)
  - Muscular weakness [None]
  - Abdominal pain [None]

NARRATIVE: CASE EVENT DATE: 20170201
